FAERS Safety Report 7736173-2 (Version None)
Quarter: 2011Q3

REPORT INFORMATION
  Report Type: 
  Country: None (occurrence: None)
  Receive Date: 20110908
  Receipt Date: 20110829
  Transmission Date: 20111222
  Serious: Yes (Disabling)
  Sender: FDA-Public Use
  Company Number: US-US-EMD SERONO, INC.-7073600

PATIENT
  Sex: Female
  Weight: 53 kg

DRUGS (9)
  1. AMANTADINE HCL [Concomitant]
  2. METOPROLOL [Concomitant]
  3. TRIAZOLAM [Concomitant]
  4. ASPIRIN [Concomitant]
  5. ULTRAM [Concomitant]
  6. ZYRTEC [Concomitant]
  7. REBIF [Suspect]
     Indication: MULTIPLE SCLEROSIS
     Route: 058
     Dates: start: 20090501
  8. GABAPENTIN [Concomitant]
  9. REBIF [Suspect]
     Route: 058
     Dates: start: 20110630

REACTIONS (2)
  - MULTIPLE SCLEROSIS RELAPSE [None]
  - DERMATITIS CONTACT [None]
